FAERS Safety Report 14369716 (Version 1)
Quarter: 2018Q1

REPORT INFORMATION
  Report Type: Spontaneous
  Country: US (occurrence: US)
  Receive Date: 20180110
  Receipt Date: 20180110
  Transmission Date: 20180509
  Serious: No
  Sender: FDA-Public Use
  Company Number: US-DRREDDYS-USA/USA/17/0090751

PATIENT
  Age: 51 Year
  Sex: Female
  Weight: 68.4 kg

DRUGS (1)
  1. HABITROL [Suspect]
     Active Substance: NICOTINE
     Indication: SMOKING CESSATION THERAPY
     Route: 062

REACTIONS (2)
  - Application site erythema [Not Recovered/Not Resolved]
  - Sunburn [Not Recovered/Not Resolved]
